FAERS Safety Report 16938481 (Version 1)
Quarter: 2019Q4

REPORT INFORMATION
  Report Type: Spontaneous
  Country: US (occurrence: US)
  Receive Date: 20191019
  Receipt Date: 20191019
  Transmission Date: 20200122
  Serious: No
  Sender: FDA-Public Use
  Company Number: US-TEVA-2019-US-1123989

PATIENT
  Sex: Female

DRUGS (1)
  1. BUPROPION HCL SR SC [Suspect]
     Active Substance: BUPROPION HYDROCHLORIDE
     Route: 065

REACTIONS (2)
  - Adverse reaction [Unknown]
  - Product substitution issue [Unknown]
